FAERS Safety Report 9695892 (Version 1)
Quarter: 2013Q4

REPORT INFORMATION
  Report Type: Spontaneous
  Country: US (occurrence: None)
  Receive Date: 20131118
  Receipt Date: 20131118
  Transmission Date: 20140711
  Serious: No
  Sender: FDA-Public Use
  Company Number: None

PATIENT
  Age: 54 Year
  Sex: Female
  Weight: 81.65 kg

DRUGS (1)
  1. CYTOMEL [Suspect]
     Indication: HYPOTHYROIDISM
     Dosage: 50 MCG  TWICE DAILY  TAKEN BY MOUTH
     Route: 048

REACTIONS (5)
  - Drug ineffective [None]
  - Tri-iodothyronine increased [None]
  - Cardiac disorder [None]
  - Product quality issue [None]
  - Blood test abnormal [None]
